FAERS Safety Report 20196789 (Version 2)
Quarter: 2022Q1

REPORT INFORMATION
  Report Type: Spontaneous
  Country: GB (occurrence: GB)
  Receive Date: 20211216
  Receipt Date: 20220111
  Transmission Date: 20220423
  Serious: Yes (Hospitalization, Other)
  Sender: FDA-Public Use
  Company Number: GB-BoehringerIngelheim-2021-BI-143076

PATIENT
  Age: 70 Year
  Sex: Male

DRUGS (5)
  1. JARDIANCE [Suspect]
     Active Substance: EMPAGLIFLOZIN
     Indication: Cardiac failure
     Route: 065
     Dates: start: 20211129, end: 20211206
  2. RAMIPRIL [Concomitant]
     Active Substance: RAMIPRIL
     Indication: Cardiac failure
  3. SPIRONOLACTONE [Concomitant]
     Active Substance: SPIRONOLACTONE
     Indication: Cardiac failure
  4. METOLAZONE [Concomitant]
     Active Substance: METOLAZONE
     Indication: Cardiac failure
     Dates: end: 20211206
  5. Co Amxiclav [Concomitant]
     Indication: Urinary tract infection
     Dates: start: 20211206

REACTIONS (6)
  - Glomerular filtration rate decreased [Not Recovered/Not Resolved]
  - Delirium [Recovered/Resolved]
  - Speech disorder [Recovered/Resolved]
  - Urinary tract infection [Unknown]
  - Fatigue [Recovered/Resolved]
  - Confusional state [Recovered/Resolved]

NARRATIVE: CASE EVENT DATE: 20211201
